FAERS Safety Report 6261510-8 (Version None)
Quarter: 2009Q3

REPORT INFORMATION
  Report Type: 
  Country: None (occurrence: None)
  Receive Date: 20090707
  Receipt Date: 20090707
  Transmission Date: 20100115
  Serious: Yes (Death, Hospitalization)
  Sender: FDA-Public Use
  Company Number: None

PATIENT
  Age: 79 Year
  Sex: Female
  Weight: 64.8 kg

DRUGS (26)
  1. LOVENOX [Suspect]
     Indication: THROMBOSIS PROPHYLAXIS
     Dosage: 30MG DAILY SQ
     Route: 058
     Dates: start: 20090528, end: 20090604
  2. HEPERAIN FLUSH [Concomitant]
  3. ACETAMINOPHEN [Concomitant]
  4. CEFEPIME [Concomitant]
  5. CISATRACURIUM [Concomitant]
  6. CLONIDINE [Concomitant]
  7. DEXAMETHASONE [Concomitant]
  8. GLYCOPYRROLATE [Concomitant]
  9. LEVOTHYROXINE SODIUM [Concomitant]
  10. LIDOCAINE [Concomitant]
  11. LORAZEPAM [Concomitant]
  12. MEPERIDINE HCL [Concomitant]
  13. METOCLOPRAMIDE [Concomitant]
  14. METRONIDAZOLE IV [Concomitant]
  15. MIDAZOLAM HCL [Concomitant]
  16. NEOSTIGMINE [Concomitant]
  17. ONDANSETRON [Concomitant]
  18. PANTOPRAZOLE SODIUM [Concomitant]
  19. PHYTONADIONE [Concomitant]
  20. PROMETHAZINE [Concomitant]
  21. PROPOFOL [Concomitant]
  22. SUCCINYLCHOLINE CHLORIDE [Concomitant]
  23. TEMAZEPAM [Concomitant]
  24. THIOPENTAL SODIUM [Concomitant]
  25. TPN [Concomitant]
  26. VANCOMYCIN [Concomitant]

REACTIONS (3)
  - ANAEMIA POSTOPERATIVE [None]
  - CONDITION AGGRAVATED [None]
  - POST PROCEDURAL HAEMORRHAGE [None]
